FAERS Safety Report 26080723 (Version 1)
Quarter: 2025Q4

REPORT INFORMATION
  Report Type: Spontaneous
  Country: EU (occurrence: EU)
  Receive Date: 20251124
  Receipt Date: 20251124
  Transmission Date: 20260117
  Serious: Yes (Life-Threatening, Other)
  Sender: HIKMA
  Company Number: EU-DCGMA-25206121

PATIENT
  Age: 69 Year
  Sex: Male

DRUGS (1)
  1. CEFAZOLIN [Suspect]
     Active Substance: CEFAZOLIN
     Indication: Staphylococcal infection
     Dosage: 6 GRAM, QD (2G I.V. 1-1-1-0 DAILY DOSE: 6 G EVERY 1 DAY)
     Route: 042
     Dates: start: 20251019

REACTIONS (2)
  - International normalised ratio increased [Recovered/Resolved]
  - Prothrombin time prolonged [Recovered/Resolved]

NARRATIVE: CASE EVENT DATE: 20251022
